FAERS Safety Report 23235394 (Version 2)
Quarter: 2023Q4

REPORT INFORMATION
  Report Type: Spontaneous
  Country: US (occurrence: US)
  Receive Date: 20231128
  Receipt Date: 20231205
  Transmission Date: 20240109
  Serious: Yes (Other)
  Sender: FDA-Public Use
  Company Number: US-MLMSERVICE-20231113-4658890-2

PATIENT
  Age: 75 Year
  Sex: Female

DRUGS (2)
  1. ZOLEDRONIC ACID [Suspect]
     Active Substance: ZOLEDRONIC ACID
     Indication: Intraductal proliferative breast lesion
     Dosage: 10 COURSES
  2. ZOLEDRONIC ACID [Suspect]
     Active Substance: ZOLEDRONIC ACID
     Indication: Triple negative breast cancer

REACTIONS (2)
  - Osteonecrosis of jaw [Recovered/Resolved]
  - Off label use [Unknown]
